FAERS Safety Report 5389694-4 (Version None)
Quarter: 2007Q3

REPORT INFORMATION
  Report Type: 
  Country: None (occurrence: None)
  Receive Date: 20070717
  Receipt Date: 20070703
  Transmission Date: 20080115
  Serious: Yes (Hospitalization, Disabling)
  Sender: FDA-Public Use
  Company Number: NL-ELI_LILLY_AND_COMPANY-NL200706006459

PATIENT
  Age: 77 Year
  Sex: Male
  Weight: 73.3 kg

DRUGS (10)
  1. SOMATROPIN [Suspect]
     Dosage: 0.2 MG, DAILY (1/D)
     Route: 058
     Dates: start: 19960611
  2. AMLODIPINE [Concomitant]
     Indication: HYPERTENSION
     Dosage: UNK, UNK
     Dates: start: 20020101
  3. LEVOTHYROXINE SODIUM [Concomitant]
     Indication: SECONDARY HYPOTHYROIDISM
     Dosage: UNK, UNK
     Dates: start: 19940101
  4. ANDROGEL [Concomitant]
     Indication: SECONDARY HYPOGONADISM
     Dosage: UNK, UNK
     Dates: start: 20040101
  5. HYDROCORTISON [Concomitant]
     Indication: ADRENAL INSUFFICIENCY
     Dosage: UNK, UNK
     Dates: start: 19940101
  6. SALBUTAMOL [Concomitant]
     Indication: CHRONIC OBSTRUCTIVE PULMONARY DISEASE
     Dosage: UNK , UNK
     Dates: start: 19970101
  7. BUDESONIDE [Concomitant]
     Indication: CHRONIC OBSTRUCTIVE PULMONARY DISEASE
     Dosage: UNK , UNK
     Dates: start: 19970101
  8. ASCAL [Concomitant]
     Dosage: UNK, WEEKLY (1/W)
     Route: 065
  9. PERSANTIN [Concomitant]
     Dosage: UNK, UNKNOWN
     Route: 065
  10. CHOLESTEROL- AND TRIGLYCERIDE REDUCERS [Concomitant]
     Dosage: UNK, UNKNOWN
     Route: 065

REACTIONS (1)
  - CEREBROVASCULAR ACCIDENT [None]
